FAERS Safety Report 14992977 (Version 1)
Quarter: 2018Q2

REPORT INFORMATION
  Report Type: Spontaneous
  Country: US (occurrence: US)
  Receive Date: 20180610
  Receipt Date: 20180610
  Transmission Date: 20180711
  Serious: No
  Sender: FDA-Public Use
  Company Number: US-JNJFOC-20180539384

PATIENT
  Sex: Female

DRUGS (2)
  1. RISPERDAL [Suspect]
     Active Substance: RISPERIDONE
     Indication: ALCOHOL ABUSE
     Route: 065
  2. RISPERDAL [Suspect]
     Active Substance: RISPERIDONE
     Indication: ALCOHOL ABUSE
     Route: 065

REACTIONS (7)
  - Product use in unapproved indication [Unknown]
  - Speech disorder [Unknown]
  - Gait inability [Unknown]
  - Ataxia [Unknown]
  - Insomnia [Unknown]
  - Pain [Unknown]
  - Off label use [Unknown]
